FAERS Safety Report 18848083 (Version 1)
Quarter: 2021Q1

REPORT INFORMATION
  Report Type: Spontaneous
  Country: US (occurrence: US)
  Receive Date: 20210204
  Receipt Date: 20210204
  Transmission Date: 20210419
  Serious: No
  Sender: FDA-Public Use
  Company Number: US-MYLANLABS-2021M1006988

PATIENT
  Age: 30 Year
  Sex: Female
  Weight: 55.79 kg

DRUGS (3)
  1. EPINEPHRINE. [Suspect]
     Active Substance: EPINEPHRINE
     Indication: LIP PRURITUS
     Dosage: UNK
     Route: 065
     Dates: start: 20210113
  2. EPINEPHRINE. [Suspect]
     Active Substance: EPINEPHRINE
     Indication: PARAESTHESIA ORAL
  3. DECADRON [Concomitant]
     Active Substance: DEXAMETHASONE
     Dosage: UNK

REACTIONS (2)
  - Hyperhidrosis [Unknown]
  - Pyrexia [Unknown]

NARRATIVE: CASE EVENT DATE: 202101
